FAERS Safety Report 10197906 (Version 1)
Quarter: 2014Q2

REPORT INFORMATION
  Report Type: Report from Study
  Country: US (occurrence: US)
  Receive Date: 20140527
  Receipt Date: 20140527
  Transmission Date: 20141212
  Serious: Yes (Other)
  Sender: FDA-Public Use
  Company Number: US-BRISTOL-MYERS SQUIBB COMPANY-20800819

PATIENT
  Sex: Male

DRUGS (1)
  1. ERBITUX [Suspect]

REACTIONS (1)
  - Surgery [Unknown]
